FAERS Safety Report 20708639 (Version 1)
Quarter: 2022Q2

REPORT INFORMATION
  Report Type: Spontaneous
  Country: GB (occurrence: GB)
  Receive Date: 20220414
  Receipt Date: 20220414
  Transmission Date: 20220721
  Serious: Yes (Hospitalization, Other)
  Sender: FDA-Public Use
  Company Number: GB-JNJFOC-20220238174

PATIENT
  Age: 62 Year
  Sex: Male

DRUGS (3)
  1. ABIRATERONE [Suspect]
     Active Substance: ABIRATERONE
     Indication: Prostate cancer
     Route: 048
     Dates: start: 20190624
  2. PREDNISOLONE [Concomitant]
     Active Substance: PREDNISOLONE
     Indication: Prostate cancer
     Route: 048
     Dates: start: 20190624
  3. PIPERACILLIN SODIUM\TAZOBACTAM SODIUM [Concomitant]
     Active Substance: PIPERACILLIN SODIUM\TAZOBACTAM SODIUM
     Indication: Infection
     Route: 042
     Dates: start: 20220215

REACTIONS (8)
  - Cholecystitis acute [Not Recovered/Not Resolved]
  - Pain in extremity [Recovering/Resolving]
  - Bile duct stone [Unknown]
  - Chest discomfort [Recovering/Resolving]
  - Sepsis [Recovering/Resolving]
  - COVID-19 [Recovered/Resolved]
  - Blood alkaline phosphatase abnormal [Recovering/Resolving]
  - Alanine aminotransferase abnormal [Recovering/Resolving]

NARRATIVE: CASE EVENT DATE: 20220101
